FAERS Safety Report 4430236-5 (Version None)
Quarter: 2004Q3

REPORT INFORMATION
  Report Type: 
  Country: None (occurrence: None)
  Receive Date: 20040817
  Receipt Date: 20040804
  Transmission Date: 20050211
  Serious: Yes (Death)
  Sender: FDA-Public Use
  Company Number: 02100-JPN-04-0220

PATIENT
  Age: 65 Year
  Sex: Female

DRUGS (5)
  1. CILOSTAZOL [Suspect]
     Indication: ARTERIOSCLEROSIS
     Dosage: SEE IMAGE
     Route: 048
     Dates: start: 20030404, end: 20040121
  2. CILOSTAZOL [Suspect]
     Indication: ARTERIOSCLEROSIS
     Dosage: SEE IMAGE
     Route: 048
     Dates: start: 20040202, end: 20040714
  3. LOSARTAN POTASSIUM [Concomitant]
  4. PRAVASTATIN SODIUM [Concomitant]
  5. RALOXIFENE HCL [Concomitant]

REACTIONS (4)
  - CEREBRAL HAEMORRHAGE [None]
  - FALL [None]
  - HAEMORRHAGE SUBCUTANEOUS [None]
  - HEAD INJURY [None]
